FAERS Safety Report 6060746-9 (Version None)
Quarter: 2009Q1

REPORT INFORMATION
  Report Type: 
  Country: None (occurrence: None)
  Receive Date: 20090202
  Receipt Date: 20090121
  Transmission Date: 20090719
  Serious: Yes (Hospitalization)
  Sender: FDA-Public Use
  Company Number: GB-PFIZER INC-2008032429

PATIENT

DRUGS (8)
  1. SUNITINIB MALATE [Suspect]
     Indication: RENAL CELL CARCINOMA
     Dosage: 37.5 MG, 1X/DAY
     Route: 048
     Dates: start: 20060605
  2. ASPIRIN [Concomitant]
     Route: 048
     Dates: start: 20040101
  3. DOXAZOSIN MESYLATE [Concomitant]
     Route: 048
     Dates: start: 20050101
  4. RAMIPRIL [Concomitant]
     Route: 048
     Dates: start: 20010101
  5. FELODIPINE [Concomitant]
     Route: 048
     Dates: start: 20060622
  6. LEVOTHYROXINE [Concomitant]
     Route: 048
     Dates: start: 20070611
  7. CREON [Concomitant]
     Route: 048
     Dates: start: 20050101
  8. LANSOPRAZOLE [Concomitant]
     Route: 048
     Dates: start: 20060704

REACTIONS (1)
  - ANGINA UNSTABLE [None]
